FAERS Safety Report 10091680 (Version 2)
Quarter: 2014Q2

REPORT INFORMATION
  Report Type: Spontaneous
  Country: US (occurrence: US)
  Receive Date: 20140421
  Receipt Date: 20140421
  Transmission Date: 20141212
  Serious: No
  Sender: FDA-Public Use
  Company Number: US-GILEAD-2013-0068006

PATIENT
  Sex: Male

DRUGS (3)
  1. LETAIRIS [Suspect]
     Indication: PULMONARY ARTERIAL HYPERTENSION
     Dosage: 10 MG, QD
     Route: 048
     Dates: start: 20100524
  2. ADCIRCA [Concomitant]
  3. REMODULIN [Concomitant]

REACTIONS (6)
  - Head injury [Unknown]
  - Fall [Unknown]
  - Syncope [Unknown]
  - Infusion site pain [Unknown]
  - Nausea [Unknown]
  - Vomiting [Unknown]
